FAERS Safety Report 25943708 (Version 1)
Quarter: 2025Q4

REPORT INFORMATION
  Report Type: Spontaneous
  Country: US (occurrence: None)
  Receive Date: 20251019
  Receipt Date: 20251019
  Transmission Date: 20260118
  Serious: No
  Sender: FDA-CTU
  Company Number: None

PATIENT
  Age: 49 Year
  Sex: Female

DRUGS (2)
  1. 15 DAY CLEANSE GUT SUPPORT [Suspect]
     Active Substance: ALOE VERA LEAF\SENNA LEAF
     Indication: Constipation
     Dates: start: 20250915, end: 20250915
  2. ALBUTEROL [Concomitant]
     Active Substance: ALBUTEROL

REACTIONS (5)
  - Hepatitis acute [None]
  - Hepatic necrosis [None]
  - Cholestasis [None]
  - Drug-induced liver injury [None]
  - Autoimmune hepatitis [None]
